FAERS Safety Report 9879490 (Version 1)
Quarter: 2014Q1

REPORT INFORMATION
  Report Type: Spontaneous
  Country: DK (occurrence: DE)
  Receive Date: 20140206
  Receipt Date: 20140206
  Transmission Date: 20141002
  Serious: Yes (Other)
  Sender: FDA-Public Use
  Company Number: DE-FRI-1000053965

PATIENT
  Age: 19 Year
  Sex: Female
  Weight: 70 kg

DRUGS (3)
  1. ESCITALOPRAM [Suspect]
     Indication: DEPRESSION
     Dosage: 20 MG
     Route: 048
     Dates: start: 20090926, end: 20091105
  2. SEROQUEL [Suspect]
     Indication: BORDERLINE PERSONALITY DISORDER
     Dosage: 25 MG
     Route: 048
     Dates: start: 20090926, end: 20091105
  3. MEDIKINET [Suspect]
     Indication: ATTENTION DEFICIT/HYPERACTIVITY DISORDER
     Dosage: 20 MG
     Route: 048
     Dates: start: 20090926, end: 20091105

REACTIONS (3)
  - Pre-eclampsia [Unknown]
  - HELLP syndrome [Unknown]
  - Caesarean section [Unknown]
